FAERS Safety Report 6518141-1 (Version None)
Quarter: 2009Q4

REPORT INFORMATION
  Report Type: 
  Country: None (occurrence: None)
  Receive Date: 20091224
  Receipt Date: 20091217
  Transmission Date: 20100525
  Serious: Yes (Hospitalization, Other)
  Sender: FDA-Public Use
  Company Number: US-ELI_LILLY_AND_COMPANY-US200912002782

PATIENT
  Sex: Female

DRUGS (9)
  1. FORTEO [Suspect]
     Indication: OSTEOPOROSIS
     Dates: end: 20090101
  2. FORTEO [Suspect]
     Dosage: UNK, DAILY (1/D)
     Dates: start: 20091208
  3. AMOXICILLIN [Concomitant]
  4. RISPERIDONE [Concomitant]
  5. FERROUS SULFATE TAB [Concomitant]
  6. OXYCODONE HCL AND ACETAMINOPHEN [Concomitant]
  7. FLUOXETINE HCL [Concomitant]
  8. KLONOPIN [Concomitant]
  9. VITAMINS NOS [Concomitant]

REACTIONS (7)
  - ANXIETY [None]
  - BLOOD POTASSIUM INCREASED [None]
  - CARDIAC FAILURE CONGESTIVE [None]
  - DECUBITUS ULCER [None]
  - DYSPNOEA [None]
  - PERFORATED ULCER [None]
  - WOUND INFECTION [None]
